FAERS Safety Report 12382052 (Version 2)
Quarter: 2016Q3

REPORT INFORMATION
  Report Type: Report from Study
  Country: AU (occurrence: AU)
  Receive Date: 20160518
  Receipt Date: 20160725
  Transmission Date: 20161109
  Serious: Yes (Hospitalization)
  Sender: FDA-Public Use
  Company Number: AU-AMGEN-AUSCT2016061067

PATIENT
  Age: 54 Year
  Sex: Male
  Weight: 58.9 kg

DRUGS (3)
  1. EVEROLIMUS [Concomitant]
     Active Substance: EVEROLIMUS
     Indication: COLORECTAL CANCER
     Dosage: 5 MG, QOD
     Route: 048
     Dates: start: 20140115
  2. PANITUMUMAB [Suspect]
     Active Substance: PANITUMUMAB
     Indication: COLORECTAL CANCER
     Dosage: 360 MG, Q2WK
     Route: 042
     Dates: start: 20140115
  3. IRINOTECAN [Concomitant]
     Active Substance: IRINOTECAN
     Indication: COLORECTAL CANCER
     Dosage: 330 MG, Q2WK
     Route: 042
     Dates: start: 20140115

REACTIONS (1)
  - Shoulder arthroplasty [Unknown]

NARRATIVE: CASE EVENT DATE: 20160510
